FAERS Safety Report 6763471-1 (Version None)
Quarter: 2010Q2

REPORT INFORMATION
  Report Type: 
  Country: None (occurrence: None)
  Receive Date: 20100608
  Receipt Date: 20100601
  Transmission Date: 20101027
  Serious: Yes (Other)
  Sender: FDA-Public Use
  Company Number: AVE_01843_2010

PATIENT
  Sex: Male

DRUGS (19)
  1. CLONIDINE [Suspect]
     Indication: HYPERTENSION
     Dosage: 0.6 MG QD VIA 1X/WEEKLY PATCH TRANSDERMAL
     Route: 062
     Dates: start: 20100501
  2. LISINOPRIL [Concomitant]
  3. ECOTRIN [Concomitant]
  4. GEMFIBROZIL [Concomitant]
  5. OMEPRAZOLE [Concomitant]
  6. SIMVASTATIN [Concomitant]
  7. POTASSIUM [Concomitant]
  8. FUROSEMIDE [Concomitant]
  9. AMLODIPINE [Concomitant]
  10. GLIMEPIRIDE [Concomitant]
  11. HYDRALAZINE HCL [Concomitant]
  12. CHOLECALCIFEROL [Concomitant]
  13. HUMALOG [Concomitant]
  14. LANTUS [Concomitant]
  15. FINASTERIDE [Concomitant]
  16. PLAVIX [Concomitant]
  17. TERAZOSIN HCL [Concomitant]
  18. CARVEDILOL [Concomitant]
  19. ISOSORBIDE [Concomitant]

REACTIONS (4)
  - BLOOD PRESSURE INADEQUATELY CONTROLLED [None]
  - DRUG INEFFECTIVE [None]
  - HYPERTENSIVE CRISIS [None]
  - PRODUCT ADHESION ISSUE [None]
